FAERS Safety Report 9046349 (Version 2)
Quarter: 2013Q1

REPORT INFORMATION
  Report Type: Spontaneous
  Country: US (occurrence: US)
  Receive Date: 20130201
  Receipt Date: 20130313
  Transmission Date: 20140127
  Serious: No
  Sender: FDA-Public Use
  Company Number: US-PFIZER INC-2013038521

PATIENT
  Age: 54 Year
  Sex: 0

DRUGS (1)
  1. VISTARIL [Suspect]
     Dosage: 1-2 Q6H AS NEEDED
     Route: 048

REACTIONS (1)
  - Panic attack [Unknown]
